FAERS Safety Report 6083857-0 (Version None)
Quarter: 2009Q1

REPORT INFORMATION
  Report Type: 
  Country: None (occurrence: None)
  Receive Date: 20090217
  Receipt Date: 20090217
  Transmission Date: 20090719
  Serious: Yes (Other)
  Sender: FDA-Public Use
  Company Number: None

PATIENT
  Sex: Female
  Weight: 89.3586 kg

DRUGS (3)
  1. METFORMIN HCL [Suspect]
     Indication: INSULIN RESISTANCE
     Dosage: 4 TABS 1 X IN PM ORAL
     Route: 048
     Dates: start: 20080731, end: 20080922
  2. METFORMIN HCL [Suspect]
     Indication: INSULIN RESISTANCE
     Dosage: 4 TABS 1 X IN PM ORAL
     Route: 048
     Dates: start: 20081008, end: 20081123
  3. GLUMETZA [Suspect]

REACTIONS (6)
  - DIARRHOEA [None]
  - ECONOMIC PROBLEM [None]
  - NAUSEA [None]
  - PAIN [None]
  - THERAPEUTIC RESPONSE UNEXPECTED WITH DRUG SUBSTITUTION [None]
  - VOMITING [None]
